FAERS Safety Report 18624187 (Version 20)
Quarter: 2021Q4

REPORT INFORMATION
  Report Type: Report from Study
  Country: CN (occurrence: CN)
  Receive Date: 20201216
  Receipt Date: 20211007
  Transmission Date: 20220303
  Serious: Yes (Death, Other)
  Sender: FDA-Public Use
  Company Number: CN-EISAI MEDICAL RESEARCH-EC-2020-085375

PATIENT
  Age: 62 Year
  Sex: Female
  Weight: 75.5 kg

DRUGS (12)
  1. LENVATINIB [Suspect]
     Active Substance: LENVATINIB
     Indication: Endometrial cancer
     Dosage: STARTING DOSE: 20 MILLIGRAM; FLUCTUATING DOSES
     Route: 048
     Dates: start: 20200902, end: 20201117
  2. LENVATINIB [Suspect]
     Active Substance: LENVATINIB
     Route: 048
     Dates: start: 20201118, end: 20201118
  3. PEMBROLIZUMAB [Suspect]
     Active Substance: PEMBROLIZUMAB
     Indication: Endometrial cancer
     Route: 041
     Dates: start: 20200902, end: 20200924
  4. PEMBROLIZUMAB [Suspect]
     Active Substance: PEMBROLIZUMAB
     Route: 041
     Dates: start: 20201027, end: 20201027
  5. PEMBROLIZUMAB [Suspect]
     Active Substance: PEMBROLIZUMAB
     Route: 041
     Dates: start: 20201120, end: 20210224
  6. DOXEPIN HYDROCHLORIDE [Concomitant]
     Active Substance: DOXEPIN HYDROCHLORIDE
     Dates: start: 202005, end: 20210209
  7. GAMMA ORYZANOL [Concomitant]
     Active Substance: GAMMA ORYZANOL
     Dates: start: 202005, end: 20210209
  8. COD LIVER OIL [Concomitant]
     Active Substance: COD LIVER OIL
     Dates: start: 20201008
  9. VITAMIN D NOS [Concomitant]
     Active Substance: VITAMIN D NOS
     Dates: start: 20201008
  10. IRBESARTAN [Concomitant]
     Active Substance: IRBESARTAN
     Dates: start: 20201009, end: 202101
  11. FELODIPINE [Concomitant]
     Active Substance: FELODIPINE
     Dates: start: 20201009, end: 202101
  12. COMPOUND LIQUORICE [Concomitant]
     Dates: start: 20201014, end: 20210106

REACTIONS (1)
  - Epilepsy [Not Recovered/Not Resolved]

NARRATIVE: CASE EVENT DATE: 20201119
